FAERS Safety Report 4444925-X (Version None)
Quarter: 2004Q3

REPORT INFORMATION
  Report Type: 
  Country: None (occurrence: None)
  Receive Date: 20040903
  Receipt Date: 20040820
  Transmission Date: 20050211
  Serious: Yes (Death, Hospitalization)
  Sender: FDA-Public Use
  Company Number: FABR-10743

PATIENT
  Age: 48 Year
  Sex: Male
  Weight: 45 kg

DRUGS (16)
  1. FABRAZYME [Suspect]
     Indication: FABRY'S DISEASE
     Dosage: 45 MG Q2WKS IV
     Route: 042
     Dates: start: 20040528, end: 20040818
  2. SELBEX [Concomitant]
  3. CYANOCOBALAMIN [Concomitant]
  4. PANALDINE [Concomitant]
  5. OHNES [Concomitant]
  6. PERAPRIN [Concomitant]
  7. ONEALFA [Concomitant]
  8. GASTER [Concomitant]
  9. 8-HOUR BAYER [Concomitant]
  10. TANKARU [Concomitant]
  11. RYTHMODAN [Concomitant]
  12. LOPRESSOR [Concomitant]
  13. TEGRETOL [Concomitant]
  14. LAC B [Concomitant]
  15. LOPEMIN [Concomitant]
  16. SUNRYTHM [Concomitant]

REACTIONS (3)
  - CARDIAC ARREST [None]
  - INTESTINAL INFARCTION [None]
  - SHOCK [None]
